FAERS Safety Report 17647075 (Version 2)
Quarter: 2020Q4

REPORT INFORMATION
  Report Type: Report from Study
  Country: US (occurrence: US)
  Receive Date: 20200409
  Receipt Date: 20201021
  Transmission Date: 20210113
  Serious: Yes (Hospitalization)
  Sender: FDA-Public Use
  Company Number: US-TEVA-2020-US-1219673

PATIENT
  Sex: Male

DRUGS (6)
  1. MYORISAN [Suspect]
     Active Substance: ISOTRETINOIN
     Indication: SCAR
     Dosage: 60 MILLIGRAM DAILY;
     Route: 065
     Dates: start: 201912, end: 202002
  2. TRETINOIN. [Concomitant]
     Active Substance: TRETINOIN
  3. DAPSONE. [Concomitant]
     Active Substance: DAPSONE
     Route: 061
  4. ALDARA [Concomitant]
     Active Substance: IMIQUIMOD
     Route: 061
  5. ACCUTANE [Suspect]
     Active Substance: ISOTRETINOIN
     Indication: ACNE
     Route: 065
  6. MINOCYCLINE [Concomitant]
     Active Substance: MINOCYCLINE HYDROCHLORIDE
     Dosage: 200 MILLIGRAM DAILY;

REACTIONS (2)
  - Suicidal ideation [Recovered/Resolved]
  - Depression [Recovering/Resolving]
